FAERS Safety Report 8081484-7 (Version None)
Quarter: 2012Q1

REPORT INFORMATION
  Report Type: 
  Country: None (occurrence: None)
  Receive Date: 20120130
  Receipt Date: 20120120
  Transmission Date: 20120608
  Serious: Yes (Other)
  Sender: FDA-Public Use
  Company Number: PHEH2009US02428

PATIENT
  Sex: Female

DRUGS (44)
  1. ONDANSETRON [Concomitant]
  2. METHADONE HCL [Concomitant]
  3. ELAVIL [Concomitant]
  4. HYDROCODONE BITARTRATE [Concomitant]
  5. OXYCODONE HCL [Concomitant]
  6. HYDROMORPHONE HCL [Concomitant]
  7. LOVENOX [Concomitant]
  8. RANITIDINE [Concomitant]
  9. MAXALT [Concomitant]
  10. AREDIA [Suspect]
     Indication: MULTIPLE MYELOMA
     Dosage: UNK
     Dates: end: 20070101
  11. THALIDOMIDE [Concomitant]
     Dosage: UNK
     Dates: start: 20041101, end: 20070101
  12. DECADRON [Concomitant]
  13. PRILOSEC [Concomitant]
  14. AZITHROMYCIN [Concomitant]
  15. VICODIN [Concomitant]
  16. MORPHINE [Concomitant]
  17. MS CONTIN [Concomitant]
  18. VISTARIL [Concomitant]
  19. PROMETHAZINE [Concomitant]
  20. ERYTHROMYCIN [Concomitant]
  21. KENALOG [Concomitant]
  22. DEXAMETHASONE [Concomitant]
  23. SPIRONOLACTONE [Concomitant]
  24. PERIDEX [Concomitant]
  25. CIPRO [Concomitant]
     Dosage: 500 MG, BID
  26. ZITHROMAX [Concomitant]
  27. AMITRIPTYLINE HCL [Concomitant]
  28. PERCOCET [Concomitant]
  29. METRONIDAZOLE [Concomitant]
  30. HYDROXYCHLOROQUINE SULFATE [Concomitant]
  31. QUININE SULFATE [Concomitant]
  32. TORADOL [Concomitant]
  33. ASPIRIN [Concomitant]
  34. CELECOXIB [Concomitant]
  35. PREDNISONE TAB [Concomitant]
     Dosage: UNK
     Dates: end: 20050501
  36. FUROSEMIDE [Concomitant]
  37. FERROUS GLUCONATE [Concomitant]
  38. PROPRANOLOL [Concomitant]
  39. RABEPRAZOLE SODIUM [Concomitant]
  40. DICLOFENAC [Concomitant]
     Dosage: 75 MG, PRN
  41. CLINDAMYCIN [Concomitant]
     Dosage: 300 MG, UNK
  42. OMEPRAZOLE [Concomitant]
  43. ALDACTONE [Concomitant]
  44. MOBIC [Concomitant]

REACTIONS (53)
  - PERIODONTAL DISEASE [None]
  - GINGIVITIS [None]
  - ARNOLD-CHIARI MALFORMATION [None]
  - FIBROMYALGIA [None]
  - NEUROPATHY PERIPHERAL [None]
  - ROTATOR CUFF SYNDROME [None]
  - CERVICAL DYSPLASIA [None]
  - CELLULITIS [None]
  - LIFE EXPECTANCY SHORTENED [None]
  - ANHEDONIA [None]
  - DENTAL CARIES [None]
  - FRACTURE [None]
  - DUODENAL ULCER [None]
  - BRONCHITIS [None]
  - THROMBOPHLEBITIS [None]
  - OSTEOARTHRITIS [None]
  - OSTEONECROSIS OF JAW [None]
  - TOOTH LOSS [None]
  - DISCOMFORT [None]
  - PAIN IN JAW [None]
  - PAROTITIS [None]
  - DYSPEPSIA [None]
  - DIVERTICULITIS [None]
  - ANAEMIA [None]
  - SPINAL OSTEOARTHRITIS [None]
  - CONSTIPATION [None]
  - DEFORMITY [None]
  - EATING DISORDER [None]
  - SWELLING FACE [None]
  - TRISMUS [None]
  - GASTROOESOPHAGEAL REFLUX DISEASE [None]
  - PHYSICAL DISABILITY [None]
  - SINUSITIS [None]
  - ASTHENIA [None]
  - IRON DEFICIENCY ANAEMIA [None]
  - PNEUMONIA [None]
  - OSTEOMYELITIS [None]
  - PAIN [None]
  - EMOTIONAL DISTRESS [None]
  - ANXIETY [None]
  - PERONEAL NERVE PALSY [None]
  - TOOTH ABSCESS [None]
  - SLEEP APNOEA SYNDROME [None]
  - URINARY TRACT INFECTION [None]
  - PYURIA [None]
  - PHLEBITIS [None]
  - MUSCLE SPASMS [None]
  - FATIGUE [None]
  - INJURY [None]
  - MUSCULOSKELETAL PAIN [None]
  - PAIN IN EXTREMITY [None]
  - OEDEMA PERIPHERAL [None]
  - HYPERGLOBULINAEMIA [None]
